FAERS Safety Report 8558914-7 (Version None)
Quarter: 2012Q3

REPORT INFORMATION
  Report Type: 
  Country: None (occurrence: None)
  Receive Date: 20120802
  Receipt Date: 20120730
  Transmission Date: 20120928
  Serious: Yes (Hospitalization)
  Sender: FDA-Public Use
  Company Number: US-AMGEN-USASP2011029540

PATIENT
  Age: 77 Year
  Sex: Female
  Weight: 78 kg

DRUGS (1)
  1. NPLATE [Suspect]
     Indication: THROMBOCYTOPENIA
     Dosage: 80 MUG, QWK
     Route: 058
     Dates: start: 20101123, end: 20101217

REACTIONS (12)
  - CHRONIC OBSTRUCTIVE PULMONARY DISEASE [None]
  - HYPOTENSION [None]
  - ANAEMIA [None]
  - NAUSEA [None]
  - VOMITING [None]
  - UNRESPONSIVE TO STIMULI [None]
  - GASTROENTERITIS [None]
  - ABDOMINAL PAIN [None]
  - DIZZINESS [None]
  - CLOSTRIDIAL INFECTION [None]
  - URINARY TRACT INFECTION [None]
  - PNEUMONIA [None]
